FAERS Safety Report 10640818 (Version 1)
Quarter: 2014Q4

REPORT INFORMATION
  Report Type: Spontaneous
  Country: US (occurrence: US)
  Receive Date: 20141209
  Receipt Date: 20141209
  Transmission Date: 20150529
  Serious: No
  Sender: FDA-Public Use
  Company Number: US-BAUSCH-BL-2014-006746

PATIENT
  Age: 7 Year
  Sex: Female

DRUGS (7)
  1. XENAZINE [Suspect]
     Active Substance: TETRABENAZINE
     Dosage: ? TABLET VIA G-TUBE DAILY
     Route: 048
     Dates: start: 2014
  2. XENAZINE [Suspect]
     Active Substance: TETRABENAZINE
     Route: 048
     Dates: start: 20141005
  3. XENAZINE [Suspect]
     Active Substance: TETRABENAZINE
     Dosage: 1 TABLET VIA G-TUBE DAILY
     Route: 048
     Dates: start: 2014
  4. XENAZINE [Suspect]
     Active Substance: TETRABENAZINE
     Dosage: ? TABLET VIA G-TUBE DAILY
     Route: 048
     Dates: start: 2014
  5. MIRALAX [Concomitant]
     Active Substance: POLYETHYLENE GLYCOL 3350
     Indication: PRODUCT USED FOR UNKNOWN INDICATION
     Dosage: 13 GRAMS VIA G-TUBE DAILY
  6. RANITIDINE [Concomitant]
     Active Substance: RANITIDINE\RANITIDINE HYDROCHLORIDE
     Indication: PRODUCT USED FOR UNKNOWN INDICATION
     Dosage: 90MG VIA G-TUBE NIGHTLY
  7. XENAZINE [Suspect]
     Active Substance: TETRABENAZINE
     Indication: CHOREA
     Dosage: TAKE ? TABLET VIA G-TUBE DAILY
     Route: 048
     Dates: start: 20140912

REACTIONS (5)
  - Depressed mood [Unknown]
  - Anger [Unknown]
  - Intentional product use issue [Not Recovered/Not Resolved]
  - Wrong technique in drug usage process [Not Recovered/Not Resolved]
  - Drug administration error [Not Recovered/Not Resolved]

NARRATIVE: CASE EVENT DATE: 201409
